FAERS Safety Report 14289313 (Version 1)
Quarter: 2017Q4

REPORT INFORMATION
  Report Type: Spontaneous
  Country: US (occurrence: US)
  Receive Date: 20171214
  Receipt Date: 20171214
  Transmission Date: 20180321
  Serious: No
  Sender: FDA-Public Use
  Company Number: US-PFIZER INC-2017530809

PATIENT
  Age: 53 Year
  Sex: Female
  Weight: 59.87 kg

DRUGS (2)
  1. ATROPINE SULFATE/DIPHENOXYLATE HYDROCHLORIDE [Suspect]
     Active Substance: ATROPINE SULFATE\DIPHENOXYLATE HYDROCHLORIDE
     Indication: IRRITABLE BOWEL SYNDROME
     Dosage: [ATROPINE SULFATE 0.025MG]/[DIPHENOXYLATE HCL 2.5MG]1 DF, 30MIN BEFORE BREAKFAST AND LUNCH
     Route: 048
     Dates: start: 201701, end: 201705
  2. ATROPINE SULFATE/DIPHENOXYLATE HYDROCHLORIDE [Suspect]
     Active Substance: ATROPINE SULFATE\DIPHENOXYLATE HYDROCHLORIDE
     Dosage: UNK
     Dates: start: 201706

REACTIONS (2)
  - Product use in unapproved indication [Unknown]
  - Dizziness [Recovering/Resolving]

NARRATIVE: CASE EVENT DATE: 201701
